FAERS Safety Report 4440632-8 (Version None)
Quarter: 2004Q3

REPORT INFORMATION
  Report Type: 
  Country: None (occurrence: None)
  Receive Date: 20040901
  Receipt Date: 20040901
  Transmission Date: 20050211
  Serious: Yes (Hospitalization)
  Sender: FDA-Public Use
  Company Number: None

PATIENT
  Sex: Male
  Weight: 97.0698 kg

DRUGS (2)
  1. ADVIL [Suspect]
     Indication: PAIN IN EXTREMITY
     Dosage: PO [PRIOR TO ADMISSION]
     Route: 048
  2. MOTRIN [Suspect]

REACTIONS (2)
  - FALL [None]
  - GASTROINTESTINAL HAEMORRHAGE [None]
